FAERS Safety Report 9433326 (Version 1)
Quarter: 2013Q3

REPORT INFORMATION
  Report Type: Spontaneous
  Country: US (occurrence: US)
  Receive Date: 20130731
  Receipt Date: 20130731
  Transmission Date: 20140515
  Serious: Yes (Hospitalization)
  Sender: FDA-Public Use
  Company Number: US-US-EMD SERONO, INC.-7111041

PATIENT
  Age: 63 Year
  Sex: Male

DRUGS (7)
  1. REBIF [Suspect]
     Indication: MULTIPLE SCLEROSIS
     Route: 058
     Dates: start: 20090508
  2. CLONAZEPAM [Concomitant]
     Indication: MUSCLE SPASTICITY
  3. CLONAZEPAM [Concomitant]
     Indication: ANXIETY
  4. TRAZODONE [Concomitant]
     Indication: MUSCLE SPASTICITY
  5. TRAZODONE [Concomitant]
     Indication: ANXIETY
  6. DILAUDID                           /00080902/ [Concomitant]
     Indication: PAIN
  7. OXYGEN [Concomitant]
     Indication: CHRONIC OBSTRUCTIVE PULMONARY DISEASE

REACTIONS (3)
  - Pneumonia [Recovered/Resolved]
  - Multiple sclerosis relapse [Recovered/Resolved]
  - Muscle spasticity [Not Recovered/Not Resolved]
